FAERS Safety Report 4365290-2 (Version None)
Quarter: 2004Q2

REPORT INFORMATION
  Report Type: 
  Country: None (occurrence: None)
  Receive Date: 20040525
  Receipt Date: 20040129
  Transmission Date: 20050107
  Serious: No
  Sender: FDA-Public Use
  Company Number: PHEH2004US01390

PATIENT
  Age: 51 Year
  Sex: Female
  Weight: 68.9 kg

DRUGS (3)
  1. ZELNORM [Suspect]
     Indication: CONSTIPATION
     Dosage: 6 MG, BID, ORAL; SEE IMAGE
     Route: 048
     Dates: start: 20030505, end: 20030804
  2. ZELNORM [Suspect]
     Indication: CONSTIPATION
     Dosage: 6 MG, BID, ORAL; SEE IMAGE
     Route: 048
     Dates: start: 20030805, end: 20031103
  3. ZELNORM [Suspect]
     Indication: CONSTIPATION
     Dosage: 6 MG, BID, ORAL; SEE IMAGE
     Route: 048
     Dates: start: 20031104, end: 20031215

REACTIONS (4)
  - COUGH [None]
  - DYSPNOEA [None]
  - NAUSEA [None]
  - UPPER RESPIRATORY TRACT INFECTION [None]
